FAERS Safety Report 14554522 (Version 1)
Quarter: 2018Q1

REPORT INFORMATION
  Report Type: Spontaneous
  Country: FR (occurrence: FR)
  Receive Date: 20180220
  Receipt Date: 20180220
  Transmission Date: 20180509
  Serious: Yes (Hospitalization)
  Sender: FDA-Public Use
  Company Number: FR-TEVA-2018-FR-856889

PATIENT
  Age: 0 Day
  Sex: Female
  Weight: .86 kg

DRUGS (4)
  1. LOVENOX [Suspect]
     Active Substance: ENOXAPARIN SODIUM
     Indication: EMBOLISM VENOUS
     Dosage: 1.6 ML DAILY;
     Route: 064
     Dates: start: 20170415, end: 20170930
  2. ELIQUIS [Suspect]
     Active Substance: APIXABAN
     Indication: EMBOLISM VENOUS
     Dosage: 2 DOSAGE FORMS DAILY;
     Route: 064
     Dates: start: 20170402, end: 20170415
  3. INNOHEP [Suspect]
     Active Substance: TINZAPARIN SODIUM
     Indication: EMBOLISM VENOUS
     Dosage: .7 ML DAILY;
     Route: 058
     Dates: start: 20170517, end: 20170924
  4. PANTOPRAZOLE [Suspect]
     Active Substance: PANTOPRAZOLE
     Indication: MALLORY-WEISS SYNDROME
     Dosage: 20 MILLIGRAM DAILY;
     Route: 064
     Dates: start: 20170624, end: 20170724

REACTIONS (5)
  - Premature baby [Recovering/Resolving]
  - Maternal drugs affecting foetus [None]
  - Bronchopulmonary dysplasia [Recovering/Resolving]
  - Retinopathy [Unknown]
  - Foetal growth restriction [Recovering/Resolving]

NARRATIVE: CASE EVENT DATE: 20170922
